FAERS Safety Report 7051038-X (Version None)
Quarter: 2010Q4

REPORT INFORMATION
  Report Type: 
  Country: None (occurrence: None)
  Receive Date: 20101019
  Receipt Date: 20101007
  Transmission Date: 20110411
  Serious: Yes (Other)
  Sender: FDA-Public Use
  Company Number: US-BAYER-201036729NA

PATIENT
  Sex: Female

DRUGS (1)
  1. MIRENA [Suspect]
     Indication: CONTRACEPTION
     Dosage: FREQUENCY: CONTINUOUS
     Route: 015
     Dates: start: 20050901

REACTIONS (4)
  - MENORRHAGIA [None]
  - MENSTRUATION IRREGULAR [None]
  - PROCEDURAL PAIN [None]
  - VAGINAL HAEMORRHAGE [None]
